FAERS Safety Report 6273583-7 (Version None)
Quarter: 2009Q3

REPORT INFORMATION
  Report Type: 
  Country: None (occurrence: None)
  Receive Date: 20090720
  Receipt Date: 20090707
  Transmission Date: 20100115
  Serious: Yes (Other)
  Sender: FDA-Public Use
  Company Number: US-BAYER-200911996BCC

PATIENT
  Age: 81 Year
  Sex: Female

DRUGS (4)
  1. ASPIRIN [Suspect]
     Indication: ARTERIAL OCCLUSIVE DISEASE
     Dosage: TOTAL DAILY DOSE: 81 MG  UNIT DOSE: 81 MG
     Route: 048
     Dates: start: 20080401, end: 20080401
  2. ASPIRIN [Suspect]
     Dosage: TOTAL DAILY DOSE: 325 MG  UNIT DOSE: 325 MG
     Route: 048
     Dates: start: 20080401
  3. CLOPIDOGREL [Suspect]
     Indication: ARTERIAL OCCLUSIVE DISEASE
     Dosage: TOTAL DAILY DOSE: 75 MG  UNIT DOSE: 75 MG
     Route: 048
     Dates: start: 20080401, end: 20080401
  4. CLOPIDOGREL [Suspect]
     Dosage: TOTAL DAILY DOSE: 150 MG  UNIT DOSE: 75 MG
     Route: 048
     Dates: start: 20090401

REACTIONS (2)
  - CORONARY ARTERY OCCLUSION [None]
  - MYOCARDIAL INFARCTION [None]
